FAERS Safety Report 16405242 (Version 4)
Quarter: 2019Q3

REPORT INFORMATION
  Report Type: Spontaneous
  Country: US (occurrence: US)
  Receive Date: 20190607
  Receipt Date: 20190704
  Transmission Date: 20191004
  Serious: No
  Sender: FDA-Public Use
  Company Number: US-SHIRE-US201918355

PATIENT
  Sex: Male

DRUGS (2)
  1. VPRIV [Suspect]
     Active Substance: VELAGLUCERASE ALFA
     Indication: GAUCHER^S DISEASE
     Dosage: UNK, 2X A MONTH
     Route: 042
     Dates: start: 20100518
  2. VPRIV [Suspect]
     Active Substance: VELAGLUCERASE ALFA
     Dosage: UNK, 2X A MONTH
     Route: 042
     Dates: start: 20150112

REACTIONS (2)
  - Arthralgia [Unknown]
  - Sciatica [Unknown]
